FAERS Safety Report 9997592 (Version 1)
Quarter: 2014Q1

REPORT INFORMATION
  Report Type: Spontaneous
  Country: US (occurrence: None)
  Receive Date: 20140225
  Receipt Date: 20140225
  Transmission Date: 20141002
  Serious: Yes (Hospitalization)
  Sender: FDA-Public Use
  Company Number: 2013-371

PATIENT
  Age: 68 Year
  Sex: Female

DRUGS (2)
  1. PRIALT (ZICONOTIDE) INTRATHECAL INFUSION [Suspect]
     Indication: SCIATICA
     Dosage: ONCE/HOUR
     Route: 037
  2. MORPHINE SULFATE (MORPHINE SULFATE) INJECTION [Suspect]
     Indication: SCIATICA
     Dosage: ONCE/HOUR
     Route: 037

REACTIONS (5)
  - Muscle spasms [None]
  - Hypoaesthesia [None]
  - Memory impairment [None]
  - Diarrhoea [None]
  - Vomiting [None]
